FAERS Safety Report 19990483 (Version 3)
Quarter: 2022Q2

REPORT INFORMATION
  Report Type: Report from Study
  Country: US (occurrence: US)
  Receive Date: 20211025
  Receipt Date: 20220512
  Transmission Date: 20220721
  Serious: Yes (Other)
  Sender: FDA-Public Use
  Company Number: US-NOVARTISTESTPH-NVSC2021US243331

PATIENT
  Sex: Male

DRUGS (1)
  1. ENTRESTO [Suspect]
     Active Substance: SACUBITRIL\VALSARTAN
     Indication: Product used for unknown indication
     Dosage: UNK
     Route: 048
     Dates: start: 202106

REACTIONS (5)
  - Malignant muscle neoplasm [Unknown]
  - Dyspnoea [Recovering/Resolving]
  - Abdominal discomfort [Unknown]
  - Skin discolouration [Unknown]
  - Taste disorder [Unknown]
